FAERS Safety Report 5507728-0 (Version None)
Quarter: 2007Q4

REPORT INFORMATION
  Report Type: 
  Country: None (occurrence: None)
  Receive Date: 20071105
  Receipt Date: 20071105
  Transmission Date: 20080405
  Serious: No
  Sender: FDA-Public Use
  Company Number: None

PATIENT
  Age: 12 Month
  Sex: Female
  Weight: 10.4327 kg

DRUGS (1)
  1. PEDIACARE DECONGESTANT + INFANT DROPS PEDIACARE [Suspect]
     Indication: NASOPHARYNGITIS
     Dosage: 1.2 ML 4-6 HOURS PO
     Route: 048
     Dates: start: 20071103, end: 20071104

REACTIONS (4)
  - ABNORMAL BEHAVIOUR [None]
  - FEELING DRUNK [None]
  - FUMBLING [None]
  - UNEVALUABLE EVENT [None]
